FAERS Safety Report 10394720 (Version 1)
Quarter: 2014Q3

REPORT INFORMATION
  Report Type: Spontaneous
  Country: ET (occurrence: ET)
  Receive Date: 20140820
  Receipt Date: 20140820
  Transmission Date: 20150326
  Serious: Yes (Other)
  Sender: FDA-Public Use
  Company Number: ET-009507513-1408ETH009697

PATIENT
  Age: 30 Year
  Sex: Female

DRUGS (1)
  1. IMPLANON [Suspect]
     Active Substance: ETONOGESTREL
     Indication: CONTRACEPTION
     Dosage: 1 ROD
     Route: 059
     Dates: start: 201101, end: 2014

REACTIONS (9)
  - Implant site pain [Unknown]
  - Device dislocation [Recovered/Resolved]
  - Wrong technique in drug usage process [Unknown]
  - Surgery [Recovered/Resolved]
  - General anaesthesia [Recovered/Resolved]
  - Medical device complication [Recovered/Resolved]
  - Scar [Unknown]
  - Pain in extremity [Unknown]
  - Amenorrhoea [Unknown]

NARRATIVE: CASE EVENT DATE: 201101
